FAERS Safety Report 9805832 (Version 1)
Quarter: 2014Q1

REPORT INFORMATION
  Report Type: Spontaneous
  Country: FR (occurrence: FR)
  Receive Date: 20140109
  Receipt Date: 20140109
  Transmission Date: 20141002
  Serious: Yes (Hospitalization)
  Sender: FDA-Public Use
  Company Number: FR-SA-2014SA000859

PATIENT
  Age: 82 Year
  Sex: Female
  Weight: 70 kg

DRUGS (12)
  1. LOVENOX [Suspect]
     Indication: PRODUCT USED FOR UNKNOWN INDICATION
     Route: 065
  2. KARDEGIC [Suspect]
     Indication: PRODUCT USED FOR UNKNOWN INDICATION
     Route: 048
  3. OSTRAM [Concomitant]
     Route: 048
  4. OLMETEC [Concomitant]
     Route: 048
  5. BACLOFEN [Concomitant]
     Dosage: COMPRIME SECABLE
     Route: 048
  6. CRESTOR [Concomitant]
     Route: 048
  7. ESOMEPRAZOLE [Concomitant]
     Route: 048
  8. LASILIX [Concomitant]
  9. LERCAN [Concomitant]
  10. DIFFU K [Concomitant]
  11. KLIPAL [Concomitant]
     Dosage: 300/25
  12. PARACETAMOL [Concomitant]

REACTIONS (2)
  - Haematuria [Recovered/Resolved]
  - Overdose [Recovered/Resolved]
